FAERS Safety Report 10509838 (Version 8)
Quarter: 2015Q2

REPORT INFORMATION
  Report Type: Report from Study
  Country: FR (occurrence: FR)
  Receive Date: 20141010
  Receipt Date: 20150513
  Transmission Date: 20150821
  Serious: Yes (Death, Hospitalization)
  Sender: FDA-Public Use
  Company Number: FR-ROCHE-1346175

PATIENT
  Age: 76 Year
  Sex: Female
  Weight: 60 kg

DRUGS (66)
  1. ZARZIO [Concomitant]
     Active Substance: FILGRASTIM
     Route: 065
     Dates: start: 20140214, end: 20140219
  2. SPASFON (FRANCE) [Concomitant]
     Active Substance: PHLOROGLUCINOL
     Dosage: 480 MG AS NEEDED
     Route: 065
     Dates: start: 20140225, end: 20140227
  3. ZOPHREN [Concomitant]
     Active Substance: ONDANSETRON
     Route: 065
     Dates: start: 20140207, end: 20140214
  4. PARACETAMOL [Concomitant]
     Active Substance: ACETAMINOPHEN
     Route: 048
     Dates: start: 20131011, end: 20140206
  5. STILNOX [Concomitant]
     Active Substance: ZOLPIDEM TARTRATE
     Indication: PROPHYLAXIS
     Route: 048
     Dates: start: 20131014, end: 20131031
  6. RITUXIMAB [Suspect]
     Active Substance: RITUXIMAB
     Indication: DIFFUSE LARGE B-CELL LYMPHOMA
     Dosage: FREQ: ONCE, DATE OF LAST DOSE PRIOR TO SAE (DIARRHEA): 09/JAN/2014, DAY1 OF EACH CYCLE, FOR A FURTHE
     Route: 058
     Dates: start: 20131107, end: 20140109
  7. PREDNISONE. [Suspect]
     Active Substance: PREDNISONE
     Indication: DIFFUSE LARGE B-CELL LYMPHOMA
     Route: 042
  8. CIFLOX (CIPROFLOXACIN HYDROCHLORIDE) [Concomitant]
     Active Substance: CIPROFLOXACIN HYDROCHLORIDE
     Route: 065
     Dates: start: 20140225, end: 20140227
  9. DIFFU K [Concomitant]
     Active Substance: POTASSIUM CHLORIDE
     Route: 065
     Dates: start: 20140208, end: 20140212
  10. LOVENOX [Concomitant]
     Active Substance: ENOXAPARIN SODIUM
     Route: 065
     Dates: start: 20140225, end: 20140227
  11. PRIMPERAN [Concomitant]
     Active Substance: METOCLOPRAMIDE HYDROCHLORIDE
     Route: 065
     Dates: start: 20140207
  12. IMODIUM [Concomitant]
     Active Substance: LOPERAMIDE HYDROCHLORIDE
     Route: 065
     Dates: start: 20140225, end: 20140306
  13. EPREX [Concomitant]
     Active Substance: ERYTHROPOIETIN
     Dosage: 4000 UNITS
     Route: 030
     Dates: start: 20131107, end: 20140211
  14. POLARAMINE [Concomitant]
     Active Substance: DEXCHLORPHENIRAMINE MALEATE
     Indication: PROPHYLAXIS
     Route: 042
     Dates: start: 20131011, end: 20140206
  15. VINCRISTINE [Suspect]
     Active Substance: VINCRISTINE
     Indication: DIFFUSE LARGE B-CELL LYMPHOMA
     Route: 042
  16. CIFLOX (CIPROFLOXACIN HYDROCHLORIDE) [Concomitant]
     Active Substance: CIPROFLOXACIN HYDROCHLORIDE
     Route: 065
     Dates: start: 20140227, end: 20140306
  17. FLAGYL [Concomitant]
     Active Substance: METRONIDAZOLE\METRONIDAZOLE HYDROCHLORIDE
     Indication: GENERAL PHYSICAL HEALTH DETERIORATION
     Route: 065
     Dates: start: 20140225, end: 20140307
  18. TANGANIL [Concomitant]
     Active Substance: ACETYLLEUCINE
     Route: 048
     Dates: start: 20140204
  19. PARACETAMOL [Concomitant]
     Active Substance: ACETAMINOPHEN
     Route: 048
  20. AUGMENTIN [Concomitant]
     Active Substance: AMOXICILLIN\CLAVULANATE POTASSIUM
     Route: 048
     Dates: start: 20140322, end: 20140323
  21. DIFLUCAN [Concomitant]
     Active Substance: FLUCONAZOLE
     Route: 048
     Dates: start: 20140623
  22. ONDANSETRON [Concomitant]
     Active Substance: ONDANSETRON
     Indication: PROPHYLAXIS
     Route: 042
     Dates: start: 20131011, end: 20140206
  23. RITUXIMAB [Suspect]
     Active Substance: RITUXIMAB
     Indication: DIFFUSE LARGE B-CELL LYMPHOMA
     Dosage: SINGLE DOSE, DAY1 OF CYCLE1.
     Route: 042
     Dates: start: 20131011
  24. SPASFON (FRANCE) [Concomitant]
     Active Substance: PHLOROGLUCINOL
     Route: 065
     Dates: start: 20140227, end: 20140306
  25. PRIMPERAN [Concomitant]
     Active Substance: METOCLOPRAMIDE HYDROCHLORIDE
     Dosage: AS NEEDED
     Route: 065
     Dates: start: 20140225, end: 20140307
  26. LOVENOX [Concomitant]
     Active Substance: ENOXAPARIN SODIUM
     Route: 058
     Dates: start: 20140314, end: 20140324
  27. VITAMIN B6 [Concomitant]
     Active Substance: PYRIDOXINE HYDROCHLORIDE
     Route: 065
     Dates: start: 20140226, end: 20140306
  28. OFLOCET [Concomitant]
     Active Substance: OFLOXACIN
     Route: 065
     Dates: start: 20140211, end: 20140212
  29. TAZOCILLINE [Concomitant]
     Active Substance: PIPERACILLIN SODIUM\TAZOBACTAM SODIUM
     Indication: GENERAL PHYSICAL HEALTH DETERIORATION
     Route: 065
     Dates: start: 20140225, end: 20140308
  30. MACROGOL [Concomitant]
     Active Substance: POLYETHYLENE GLYCOLS
     Indication: CONSTIPATION PROPHYLAXIS
     Dosage: 1 PACKET
     Route: 048
     Dates: start: 20131014, end: 20131031
  31. MACROGOL [Concomitant]
     Active Substance: POLYETHYLENE GLYCOLS
     Route: 048
     Dates: start: 20140623
  32. KARDEGIC [Concomitant]
     Active Substance: ASPIRIN LYSINE
     Route: 048
     Dates: start: 20140401
  33. CYCLOPHOSPHAMIDE. [Suspect]
     Active Substance: CYCLOPHOSPHAMIDE
     Indication: DIFFUSE LARGE B-CELL LYMPHOMA
     Route: 042
  34. DOXORUBICIN [Suspect]
     Active Substance: DOXORUBICIN
     Indication: DIFFUSE LARGE B-CELL LYMPHOMA
     Route: 042
  35. EPOETIN ALFA [Concomitant]
     Active Substance: ERYTHROPOIETIN
     Route: 065
     Dates: start: 20140211, end: 20140211
  36. IMODIUM [Concomitant]
     Active Substance: LOPERAMIDE HYDROCHLORIDE
     Dosage: AS NEEDED
     Route: 065
     Dates: start: 20140301
  37. EPREX [Concomitant]
     Active Substance: ERYTHROPOIETIN
     Dosage: 40000 UNITS
     Route: 030
     Dates: start: 20131107, end: 20131107
  38. CERIS [Concomitant]
     Active Substance: TROSPIUM CHLORIDE
     Route: 048
     Dates: start: 20140623
  39. PERIACTINE [Concomitant]
     Indication: ALLERGY PROPHYLAXIS
     Route: 065
     Dates: start: 20140623
  40. DIFFU K [Concomitant]
     Active Substance: POTASSIUM CHLORIDE
     Route: 065
     Dates: start: 20140225, end: 20140227
  41. LORAMYC [Concomitant]
     Active Substance: MICONAZOLE
     Indication: GENERAL PHYSICAL HEALTH DETERIORATION
     Route: 065
     Dates: start: 20140226, end: 20140303
  42. ALBUMIN [Concomitant]
     Active Substance: ALBUMIN (HUMAN)
     Indication: GENERAL PHYSICAL HEALTH DETERIORATION
     Route: 065
     Dates: start: 20140226, end: 20140228
  43. POTASSIUM CHLORIDE. [Concomitant]
     Active Substance: POTASSIUM CHLORIDE
     Indication: GENERAL PHYSICAL HEALTH DETERIORATION
     Route: 065
     Dates: start: 20140305, end: 20140312
  44. ISKEDYL [Concomitant]
     Active Substance: DIHYDROERGOCRISTINE MESYLATE\RAUBASINE
  45. EPREX [Concomitant]
     Active Substance: ERYTHROPOIETIN
     Indication: GENERAL PHYSICAL HEALTH DETERIORATION
     Route: 065
     Dates: start: 20140225, end: 20140314
  46. EPREX [Concomitant]
     Active Substance: ERYTHROPOIETIN
     Indication: DIARRHOEA
     Route: 042
     Dates: start: 20140204, end: 20140211
  47. SPASFON (FRANCE) [Concomitant]
     Active Substance: PHLOROGLUCINOL
     Route: 065
     Dates: start: 20140205
  48. LASILIX [Concomitant]
     Active Substance: FUROSEMIDE
     Route: 065
     Dates: start: 20140226, end: 20140301
  49. LASILIX [Concomitant]
     Active Substance: FUROSEMIDE
     Route: 065
     Dates: start: 20140303, end: 20140306
  50. PRIMPERAN [Concomitant]
     Active Substance: METOCLOPRAMIDE HYDROCHLORIDE
     Indication: NAUSEA
     Route: 048
     Dates: start: 20131107, end: 20131114
  51. LYRICA [Concomitant]
     Active Substance: PREGABALIN
     Dosage: ONCE DAILY
     Route: 048
     Dates: start: 20130920, end: 20131212
  52. PRIMPERAN [Concomitant]
     Active Substance: METOCLOPRAMIDE HYDROCHLORIDE
     Route: 048
     Dates: start: 20131014, end: 20131114
  53. TANGANIL [Concomitant]
     Active Substance: ACETYLLEUCINE
     Route: 048
  54. PARACETAMOL [Concomitant]
     Active Substance: ACETAMINOPHEN
     Indication: PROPHYLAXIS
     Dosage: AS NEEDED
     Route: 065
  55. CIFLOX (FRANCE) [Concomitant]
     Active Substance: CIPROFLOXACIN
     Route: 048
     Dates: start: 20140322, end: 20140323
  56. RITUXIMAB [Suspect]
     Active Substance: RITUXIMAB
     Dosage: LAST DOSE PRIOR TO EVENT (DETERIARATION OF HEALTH STATUS): 06/FEB/2014
     Route: 058
  57. LASILIX [Concomitant]
     Active Substance: FUROSEMIDE
     Route: 065
     Dates: start: 20140302, end: 20140303
  58. INNOHEP [Concomitant]
     Active Substance: TINZAPARIN SODIUM
     Dosage: UNIT DOSE AND DAILY DOSE-14000 UNITS.
     Route: 058
     Dates: start: 20131227, end: 20140204
  59. CIFLOX (CIPROFLOXACIN HYDROCHLORIDE) [Concomitant]
     Active Substance: CIPROFLOXACIN HYDROCHLORIDE
     Route: 065
     Dates: start: 20140225, end: 20140227
  60. DIFFU K [Concomitant]
     Active Substance: POTASSIUM CHLORIDE
     Route: 065
     Dates: start: 20140205, end: 20140207
  61. LOVENOX [Concomitant]
     Active Substance: ENOXAPARIN SODIUM
     Route: 065
     Dates: start: 20140304
  62. LOVENOX [Concomitant]
     Active Substance: ENOXAPARIN SODIUM
     Route: 065
     Dates: start: 20140207, end: 20140212
  63. DECAN (FRANCE) [Concomitant]
     Active Substance: MINERALS
     Route: 065
     Dates: start: 20140226, end: 20140311
  64. NORMACOL [Concomitant]
     Active Substance: KARAYA GUM
     Route: 065
     Dates: start: 20140305, end: 20140305
  65. PREDNISONE. [Concomitant]
     Active Substance: PREDNISONE
     Route: 065
     Dates: start: 20140208, end: 20140211
  66. INEXIUM [Concomitant]
     Active Substance: ESOMEPRAZOLE
     Indication: GENERAL PHYSICAL HEALTH DETERIORATION
     Route: 065
     Dates: start: 20140305

REACTIONS (3)
  - Diarrhoea [Recovered/Resolved]
  - General physical health deterioration [Fatal]
  - General physical health deterioration [Recovered/Resolved with Sequelae]

NARRATIVE: CASE EVENT DATE: 20140120
